FAERS Safety Report 25454272 (Version 1)
Quarter: 2025Q2

REPORT INFORMATION
  Report Type: Spontaneous
  Country: ES (occurrence: ES)
  Receive Date: 20250619
  Receipt Date: 20250619
  Transmission Date: 20250717
  Serious: Yes (Hospitalization)
  Sender: TEVA
  Company Number: None

PATIENT
  Age: 87 Year
  Sex: Male
  Weight: 56 kg

DRUGS (6)
  1. CLOPIDOGREL [Suspect]
     Active Substance: CLOPIDOGREL BISULFATE
     Indication: Thrombosis prophylaxis
     Dosage: CLOPIDOGREL (7300A)
     Route: 048
     Dates: start: 20141106, end: 20250217
  2. CEFTRIAXONE [Concomitant]
     Active Substance: CEFTRIAXONE
     Indication: Antibiotic prophylaxis
     Route: 042
     Dates: start: 20250215, end: 20250215
  3. CEFIXIME [Concomitant]
     Active Substance: CEFIXIME
     Indication: Antibiotic prophylaxis
     Dosage: CEFIXIME (2400A)
     Route: 048
     Dates: start: 20250216, end: 20250217
  4. METAMIZOLE [Concomitant]
     Active Substance: METAMIZOLE
     Indication: Back pain
     Dosage: METAMIZOL (111A)
     Route: 048
     Dates: start: 20250205, end: 20250212
  5. BUSCAPINA [Concomitant]
     Indication: Urethral pain
     Route: 048
     Dates: start: 20250216, end: 20250217
  6. ACETYLCYSTEINE [Concomitant]
     Active Substance: ACETYLCYSTEINE
     Indication: Cough
     Dosage: ACETYLCYSTEINE (233A)
     Route: 048
     Dates: start: 20250212, end: 20250217

REACTIONS (1)
  - Basal ganglia haemorrhage [Recovering/Resolving]

NARRATIVE: CASE EVENT DATE: 20250217
